FAERS Safety Report 5777177-9 (Version None)
Quarter: 2008Q2

REPORT INFORMATION
  Report Type: 
  Country: None (occurrence: None)
  Receive Date: 20080618
  Receipt Date: 20080610
  Transmission Date: 20081010
  Serious: Yes (Hospitalization)
  Sender: FDA-Public Use
  Company Number: GB-ROCHE-569564

PATIENT
  Sex: Female
  Weight: 93 kg

DRUGS (2)
  1. ORLISTAT [Suspect]
     Indication: OBESITY
     Route: 048
     Dates: start: 20080221
  2. HORMONE REPLACEMENT THERAPY [Concomitant]

REACTIONS (1)
  - INJURY [None]
